FAERS Safety Report 6077553-3 (Version None)
Quarter: 2009Q1

REPORT INFORMATION
  Report Type: 
  Country: None (occurrence: None)
  Receive Date: 20090213
  Receipt Date: 20090205
  Transmission Date: 20090719
  Serious: Yes (Other)
  Sender: FDA-Public Use
  Company Number: FR-AMGEN-US327673

PATIENT
  Sex: Female

DRUGS (2)
  1. ENBREL [Suspect]
     Indication: RHEUMATOID ARTHRITIS
     Route: 058
     Dates: start: 20050301
  2. DAFALGAN [Concomitant]
     Dosage: 500 MG
     Route: 048

REACTIONS (3)
  - CUTANEOUS VASCULITIS [None]
  - INFARCTION [None]
  - RAYNAUD'S PHENOMENON [None]
